FAERS Safety Report 8844827 (Version 1)
Quarter: 2012Q4

REPORT INFORMATION
  Report Type: Spontaneous
  Country: US (occurrence: None)
  Receive Date: 20121015
  Receipt Date: 20121015
  Transmission Date: 20130627
  Serious: No
  Sender: FDA-Public Use
  Company Number: AEUSA201100243

PATIENT
  Age: 39 Year
  Sex: Female

DRUGS (1)
  1. HYPERRHO [Suspect]
     Indication: PROPHYLAXIS AGAINST RH ISOIMMUNIZATION
     Route: 030
     Dates: start: 20110914, end: 20110914

REACTIONS (4)
  - Injection site pain [None]
  - Abortion spontaneous [None]
  - Needle issue [None]
  - Maternal drugs affecting foetus [None]
